FAERS Safety Report 7324481-9 (Version None)
Quarter: 2011Q1

REPORT INFORMATION
  Report Type: 
  Country: None (occurrence: None)
  Receive Date: 20110203
  Receipt Date: 20100826
  Transmission Date: 20110831
  Serious: Yes (Other)
  Sender: FDA-Public Use
  Company Number: 017873

PATIENT
  Age: 53 Year
  Sex: Female

DRUGS (7)
  1. LEXAPRO [Suspect]
     Dosage: (10 MG QD ORAL), (5 MG QD ORAL), (2.5 MG, EVERY OTHER DAY ORAL), (10 MG QD ORAL)
     Route: 048
     Dates: start: 20100201, end: 20100501
  2. LEXAPRO [Suspect]
     Dosage: (10 MG QD ORAL), (5 MG QD ORAL), (2.5 MG, EVERY OTHER DAY ORAL), (10 MG QD ORAL)
     Route: 048
     Dates: start: 20100601
  3. LEXAPRO [Suspect]
     Dosage: (10 MG QD ORAL), (5 MG QD ORAL), (2.5 MG, EVERY OTHER DAY ORAL), (10 MG QD ORAL)
     Route: 048
     Dates: start: 20100501, end: 20100501
  4. LEXAPRO [Suspect]
     Dosage: (10 MG QD ORAL), (5 MG QD ORAL), (2.5 MG, EVERY OTHER DAY ORAL), (10 MG QD ORAL)
     Route: 048
     Dates: start: 20080901, end: 20100201
  5. SYNTHROID [Concomitant]
  6. ASPIRIN [Concomitant]
  7. KEPPRA [Suspect]
     Dates: start: 20080101

REACTIONS (7)
  - CRYING [None]
  - WEIGHT INCREASED [None]
  - SUICIDAL IDEATION [None]
  - THIRST [None]
  - PAIN [None]
  - FEELING ABNORMAL [None]
  - DRY MOUTH [None]
